FAERS Safety Report 13621496 (Version 2)
Quarter: 2017Q2

REPORT INFORMATION
  Report Type: Report from Study
  Country: SE (occurrence: SE)
  Receive Date: 20170607
  Receipt Date: 20170627
  Transmission Date: 20170830
  Serious: Yes (Hospitalization)
  Sender: FDA-Public Use
  Company Number: SE-B.I. PHARMACEUTICALS,INC./RIDGEFIELD-2017-BI-030334

PATIENT
  Age: 63 Year
  Sex: Female
  Weight: 87 kg

DRUGS (7)
  1. ENALAPRIL [Concomitant]
     Active Substance: ENALAPRIL
     Indication: HYPERTONIA
     Route: 065
  2. FOLACIN [Concomitant]
     Active Substance: FOLIC ACID
     Indication: DRUG THERAPY
     Route: 065
     Dates: start: 20140412
  3. BLINDED BIBF 1120 [Suspect]
     Active Substance: NINTEDANIB
     Indication: PLEURAL MESOTHELIOMA MALIGNANT
     Route: 065
  4. PULMICORT TURBUHALER [Concomitant]
     Active Substance: BUDESONIDE
     Indication: ASTHMA
     Route: 055
  5. BRICANYL [Concomitant]
     Active Substance: TERBUTALINE SULFATE
     Indication: ASTHMA
     Route: 055
  6. SALURES [Concomitant]
     Active Substance: BENDROFLUMETHIAZIDE
     Indication: HYPERTONIA
     Route: 065
  7. SERTRALINE [Concomitant]
     Active Substance: SERTRALINE HYDROCHLORIDE
     Indication: DEPRESSION
     Route: 065

REACTIONS (1)
  - Sepsis [Not Recovered/Not Resolved]

NARRATIVE: CASE EVENT DATE: 20170528
